FAERS Safety Report 5376835-8 (Version None)
Quarter: 2007Q2

REPORT INFORMATION
  Report Type: 
  Country: None (occurrence: None)
  Receive Date: 20070530
  Receipt Date: 20070213
  Transmission Date: 20071010
  Serious: No
  Sender: FDA-Public Use
  Company Number: 2007PV030045

PATIENT
  Age: 65 Year
  Sex: Male

DRUGS (7)
  1. BYETTA [Suspect]
     Indication: DIABETES MELLITUS NON-INSULIN-DEPENDENT
     Dosage: 10 MCG; SC; 10 MCG; SC; 5 MCG; SC
     Route: 058
     Dates: start: 20070109, end: 20070207
  2. BYETTA [Suspect]
     Indication: DIABETES MELLITUS NON-INSULIN-DEPENDENT
     Dosage: 10 MCG; SC; 10 MCG; SC; 5 MCG; SC
     Route: 058
     Dates: start: 20070129
  3. BYETTA [Suspect]
     Indication: DIABETES MELLITUS NON-INSULIN-DEPENDENT
     Dosage: 10 MCG; SC; 10 MCG; SC; 5 MCG; SC
     Route: 058
     Dates: start: 20070208
  4. METFORMIN HCL [Concomitant]
  5. AVANDIA [Concomitant]
  6. GLYBURIDE [Concomitant]
  7. GLYBURIDE [Concomitant]

REACTIONS (2)
  - BLOOD GLUCOSE DECREASED [None]
  - BLOOD GLUCOSE INCREASED [None]
